FAERS Safety Report 5442684-5 (Version None)
Quarter: 2007Q3

REPORT INFORMATION
  Report Type: 
  Country: None (occurrence: None)
  Receive Date: 20070904
  Receipt Date: 20070904
  Transmission Date: 20080115
  Serious: Yes (Hospitalization)
  Sender: FDA-Public Use
  Company Number: ES-ROXANE LABORATORIES, INC-2007-DE-05119GD

PATIENT
  Age: 30 Year
  Sex: Female

DRUGS (7)
  1. METAMIZOLE [Suspect]
  2. DIAZEPAM [Suspect]
  3. METOCLOPRAMIDE [Suspect]
  4. PARACETAMOL [Concomitant]
  5. HYOSCINE N BUTYLBROMIDE [Concomitant]
  6. DICLOFENAC [Concomitant]
  7. HYDRALAZINE HCL [Concomitant]
     Indication: HYPERTENSION

REACTIONS (2)
  - HYPONATRAEMIA [None]
  - INAPPROPRIATE ANTIDIURETIC HORMONE SECRETION [None]
